FAERS Safety Report 9306259 (Version 1)
Quarter: 2013Q2

REPORT INFORMATION
  Report Type: Spontaneous
  Country: SE (occurrence: SE)
  Receive Date: 20130523
  Receipt Date: 20130523
  Transmission Date: 20140414
  Serious: Yes (Hospitalization)
  Sender: FDA-Public Use
  Company Number: SE-PFIZER INC-2013155125

PATIENT
  Age: 68 Year
  Sex: Male

DRUGS (7)
  1. LYRICA [Suspect]
     Dosage: 200 MG, 1X/DAY
     Route: 048
     Dates: start: 201302
  2. OXYNORM [Suspect]
     Dosage: 20 MG, 1X/DAY
     Route: 048
     Dates: start: 201302, end: 20130303
  3. OXYCONTIN [Suspect]
     Dosage: 20 MG, 1X/DAY
     Route: 048
     Dates: start: 201302, end: 20130303
  4. OXASCAND [Suspect]
     Dosage: 15 MG, 1X/DAY
     Route: 048
     Dates: start: 201302
  5. METOPROLOL [Concomitant]
     Dosage: UNK
  6. WARAN [Concomitant]
     Dosage: 2.5 MG, UNK
  7. DIGOXIN [Concomitant]
     Dosage: UNK

REACTIONS (2)
  - Confusional state [Recovered/Resolved]
  - Incoherent [Recovered/Resolved with Sequelae]
